FAERS Safety Report 8791365 (Version 1)
Quarter: 2012Q4

REPORT INFORMATION
  Report Type: Spontaneous
  Country: DE (occurrence: None)
  Receive Date: 20120912
  Receipt Date: 20120912
  Transmission Date: 20130627
  Serious: Yes (Congenital Anomaly, Other)
  Sender: FDA-Public Use
  Company Number: GER/GER/12/0025774

PATIENT
  Sex: Female
  Weight: 2.95 kg

DRUGS (8)
  1. LAMOTRIGINE (LAMOTRIGINE) [Suspect]
     Indication: EPILEPSY
     Dosage: 225 mg, 1 d, transplacental
     Route: 064
     Dates: start: 20110218
  2. LAMOTRIGINE (LAMOTRIGINE) [Suspect]
     Indication: EPILEPSY
     Dosage: 275 mg, 1 D
  3. LAMOTRIGINE (LAMOTRIGINE) [Suspect]
     Indication: EPILEPSY
     Dosage: 300mg, 1 D
  4. LAMOTRIGINE (LAMOTRIGINE) [Suspect]
     Indication: EPILEPSY
     Dates: end: 20111202
  5. VIMPAT [Suspect]
     Dates: start: 20110218
  6. VIMPAT [Suspect]
     Dates: end: 20111202
  7. ZEBINIX (ESLICARBAZEPINE ACETATE) [Concomitant]
  8. FOLIO FORTE (FOLIO) [Concomitant]

REACTIONS (4)
  - Atrial septal defect [None]
  - Small for dates baby [None]
  - Maternal drugs affecting foetus [None]
  - Directional Doppler flow tests abnormal [None]
